FAERS Safety Report 10681855 (Version 1)
Quarter: 2014Q4

REPORT INFORMATION
  Report Type: Spontaneous
  Country: US (occurrence: None)
  Receive Date: 20141229
  Receipt Date: 20141229
  Transmission Date: 20150529
  Serious: No
  Sender: FDA-Public Use
  Company Number: None

PATIENT
  Age: 29 Year
  Sex: Female

DRUGS (1)
  1. LO LOESTRIN FE [Suspect]
     Active Substance: ETHINYL ESTRADIOL\NORETHINDRONE ACETATE
     Indication: CONTRACEPTION
     Route: 048
     Dates: start: 20140201, end: 20141101

REACTIONS (10)
  - Weight increased [None]
  - Fungal infection [None]
  - Nausea [None]
  - Oral candidiasis [None]
  - Heart rate increased [None]
  - Breast tenderness [None]
  - Affect lability [None]
  - Dizziness [None]
  - Irritability [None]
  - Skin odour abnormal [None]
